FAERS Safety Report 7442348-2 (Version None)
Quarter: 2011Q2

REPORT INFORMATION
  Report Type: 
  Country: None (occurrence: None)
  Receive Date: 20110428
  Receipt Date: 20110414
  Transmission Date: 20111010
  Serious: Yes (Death, Hospitalization)
  Sender: FDA-Public Use
  Company Number: TR-ROCHE-726924

PATIENT
  Age: 50 Year
  Sex: Female
  Weight: 75 kg

DRUGS (4)
  1. FOLINIC ACID [Concomitant]
     Indication: RECTAL CANCER METASTATIC
     Dosage: ROUTE, FORM, DOSE AND FREQUENCY: UNKNOWN. RECEIVED 6 TIMES.
     Dates: start: 20100525, end: 20100805
  2. BEVACIZUMAB [Suspect]
     Indication: RECTAL CANCER METASTATIC
     Dosage: FORM AND FREQUENCY:  NOT REPORTED. RECEIVED 6 TIMES.
     Route: 042
     Dates: start: 20100525, end: 20100805
  3. IRINOTECAN [Concomitant]
     Indication: RECTAL CANCER METASTATIC
     Dosage: FREQUENCY: NOT REPORTED.RECEIVED 6 TIMES.
     Route: 042
     Dates: start: 20100525, end: 20100805
  4. FLUOROURACIL [Concomitant]
     Indication: RECTAL CANCER METASTATIC
     Dosage: FREQUENCY: NOT REPORTED. RECEIVED 6 TIMES.
     Route: 042
     Dates: start: 20100525, end: 20100805

REACTIONS (2)
  - HYPERTENSION [None]
  - GRAND MAL CONVULSION [None]
